FAERS Safety Report 16454739 (Version 2)
Quarter: 2019Q3

REPORT INFORMATION
  Report Type: Spontaneous
  Country: US (occurrence: US)
  Receive Date: 20190619
  Receipt Date: 20190708
  Transmission Date: 20191004
  Serious: No
  Sender: FDA-Public Use
  Company Number: US-PFIZER INC-2019258570

PATIENT
  Age: 60 Year
  Sex: Female
  Weight: 40.82 kg

DRUGS (2)
  1. VORICONAZOLE. [Suspect]
     Active Substance: VORICONAZOLE
     Indication: EYE INFECTION
     Dosage: 10MG/ML VORICONAZOLE/1% SALINE-1 DROP INTO EYE TWICE DAILY
     Dates: start: 201807
  2. SALINE [SODIUM CHLORIDE] [Suspect]
     Active Substance: SODIUM CHLORIDE
     Indication: EYE INFECTION
     Dosage: 10MG/ML VORICONAZOLE/1% SALINE-1 DROP INTO EYE TWICE DAILY

REACTIONS (7)
  - Memory impairment [Not Recovered/Not Resolved]
  - Weight decreased [Unknown]
  - Off label use [Unknown]
  - Visual impairment [Not Recovered/Not Resolved]
  - Depression [Not Recovered/Not Resolved]
  - Anxiety [Unknown]
  - Product use issue [Unknown]

NARRATIVE: CASE EVENT DATE: 201807
